FAERS Safety Report 6032302-X (Version None)
Quarter: 2008Q4

REPORT INFORMATION
  Report Type: 
  Country: None (occurrence: None)
  Receive Date: 20081222
  Receipt Date: 20081110
  Transmission Date: 20090506
  Serious: No
  Sender: FDA-Public Use
  Company Number: US-WYE-H06803508

PATIENT
  Age: 51 Year
  Sex: Female
  Weight: 67.19 kg

DRUGS (4)
  1. PRISTIQ [Suspect]
     Indication: DEPRESSION
     Dosage: 50 MG 1X PER 1 DAY, ORAL
     Route: 048
     Dates: start: 20081001
  2. ESTRACE [Concomitant]
  3. CELEBREX [Concomitant]
  4. TRAZODONE HCL [Concomitant]

REACTIONS (2)
  - INCREASED APPETITE [None]
  - WEIGHT INCREASED [None]
